FAERS Safety Report 24753815 (Version 2)
Quarter: 2024Q4

REPORT INFORMATION
  Report Type: Spontaneous
  Country: IT (occurrence: IT)
  Receive Date: 20241219
  Receipt Date: 20241230
  Transmission Date: 20250115
  Serious: Yes (Other)
  Sender: SANOFI AVENTIS
  Company Number: IT-SA-2024SA373478

PATIENT
  Age: 14 Year
  Sex: Female

DRUGS (1)
  1. DUPILUMAB [Suspect]
     Active Substance: DUPILUMAB
     Indication: Dermatitis atopic
     Dosage: UNK UNK, 1X
     Dates: start: 20241205, end: 20241205

REACTIONS (7)
  - Dyspnoea [Recovering/Resolving]
  - Furuncle [Not Recovered/Not Resolved]
  - Subcutaneous abscess [Recovering/Resolving]
  - Condition aggravated [Recovering/Resolving]
  - Pustule [Recovering/Resolving]
  - Blister [Recovering/Resolving]
  - Skin burning sensation [Recovering/Resolving]

NARRATIVE: CASE EVENT DATE: 20241201
